FAERS Safety Report 6959612-3 (Version None)
Quarter: 2010Q3

REPORT INFORMATION
  Report Type: 
  Country: None (occurrence: None)
  Receive Date: 20100825
  Receipt Date: 20100812
  Transmission Date: 20110219
  Serious: Yes (Other)
  Sender: FDA-Public Use
  Company Number: 2010SP044255

PATIENT
  Age: 44 Year
  Sex: Female
  Weight: 78 kg

DRUGS (1)
  1. IMPLANON [Suspect]
     Indication: CONTRACEPTION
     Dosage: 68 MG; SBDE
     Route: 059
     Dates: start: 20090601

REACTIONS (14)
  - AMENORRHOEA [None]
  - ANXIETY [None]
  - ARTHROPATHY [None]
  - BONE PAIN [None]
  - BREAST DISORDER [None]
  - DISCOMFORT [None]
  - DYSMENORRHOEA [None]
  - GASTRITIS [None]
  - HEPATIC STEATOSIS [None]
  - MENORRHAGIA [None]
  - MOOD ALTERED [None]
  - MUSCULOSKELETAL DISORDER [None]
  - MYALGIA [None]
  - VOMITING [None]
